FAERS Safety Report 4294844-7 (Version None)
Quarter: 2004Q1

REPORT INFORMATION
  Report Type: 
  Country: None (occurrence: None)
  Receive Date: 20040216
  Receipt Date: 20030122
  Transmission Date: 20041129
  Serious: Yes (Hospitalization)
  Sender: FDA-Public Use
  Company Number: US-GLAXOSMITHKLINE-A0393549A

PATIENT
  Age: 58 Year
  Sex: Female

DRUGS (4)
  1. LAMICTAL [Suspect]
     Dosage: 50MG TWICE PER DAY
     Route: 048
     Dates: start: 20021201
  2. SYNTHROID [Concomitant]
  3. LIPITOR [Concomitant]
  4. ASPIRIN [Concomitant]
     Dosage: 81MG AT NIGHT
     Route: 048

REACTIONS (4)
  - HEADACHE [None]
  - HOT FLUSH [None]
  - PRURITUS [None]
  - RASH [None]
